FAERS Safety Report 23282567 (Version 1)
Quarter: 2023Q4

REPORT INFORMATION
  Report Type: Spontaneous
  Country: US (occurrence: None)
  Receive Date: 20231208
  Receipt Date: 20231208
  Transmission Date: 20240109
  Serious: No
  Sender: FDA-Public Use
  Company Number: None

PATIENT
  Sex: Female

DRUGS (2)
  1. RECLAST [Suspect]
     Active Substance: ZOLEDRONIC ACID
  2. RECLAST [Concomitant]
     Active Substance: ZOLEDRONIC ACID
     Dates: start: 20231206

REACTIONS (2)
  - Dysphonia [None]
  - Mouth swelling [None]

NARRATIVE: CASE EVENT DATE: 20231206
